FAERS Safety Report 7366423-6 (Version None)
Quarter: 2011Q1

REPORT INFORMATION
  Report Type: 
  Country: None (occurrence: None)
  Receive Date: 20110322
  Receipt Date: 20110309
  Transmission Date: 20110831
  Serious: Yes (Hospitalization)
  Sender: FDA-Public Use
  Company Number: DE-BAYER-2011-013578

PATIENT
  Sex: Male
  Weight: 80 kg

DRUGS (1)
  1. SORAFENIB (RAF KINASE INHIBITOR) [Suspect]
     Indication: HEPATIC NEOPLASM MALIGNANT
     Dosage: 400 MG, BID
     Route: 048

REACTIONS (6)
  - URINARY RETENTION [None]
  - SKIN TOXICITY [None]
  - DECUBITUS ULCER [None]
  - HEPATIC NEOPLASM MALIGNANT [None]
  - POLYNEUROPATHY [None]
  - DIARRHOEA [None]
